FAERS Safety Report 7842331-9 (Version None)
Quarter: 2011Q4

REPORT INFORMATION
  Report Type: 
  Country: None (occurrence: None)
  Receive Date: 20111025
  Receipt Date: 20111019
  Transmission Date: 20120403
  Serious: Yes (Hospitalization)
  Sender: FDA-Public Use
  Company Number: FR-UCBSA-043813

PATIENT
  Age: 72 Year
  Sex: Female

DRUGS (2)
  1. KEPPRA [Suspect]
     Indication: EPILEPSY
     Route: 048
     Dates: start: 20110719, end: 20110101
  2. LOVENOX [Concomitant]
     Indication: MOBILITY DECREASED
     Dosage: DAILY
     Route: 058
     Dates: start: 20110719, end: 20110101

REACTIONS (3)
  - ANAEMIA [None]
  - NEUTROPENIA [None]
  - LEUKOPENIA [None]
